FAERS Safety Report 4345871-2 (Version None)
Quarter: 2004Q1

REPORT INFORMATION
  Report Type: 
  Country: None (occurrence: None)
  Receive Date: 20040325
  Receipt Date: 20040128
  Transmission Date: 20041129
  Serious: No
  Sender: FDA-Public Use
  Company Number: USA031253959

PATIENT
  Age: 89 Year
  Sex: Female

DRUGS (2)
  1. FORTEO [Suspect]
     Indication: FALL
     Dates: start: 20030701
  2. FORTEO [Suspect]
     Indication: FRACTURE
     Dates: start: 20030701

REACTIONS (4)
  - BALANCE DISORDER [None]
  - FEELING DRUNK [None]
  - GAIT DISTURBANCE [None]
  - HYPERTENSION [None]
